FAERS Safety Report 23954325 (Version 1)
Quarter: 2024Q2

REPORT INFORMATION
  Report Type: Other
  Country: US (occurrence: None)
  Receive Date: 20240609
  Receipt Date: 20240609
  Transmission Date: 20240716
  Serious: No
  Sender: FDA-Public Use
  Company Number: US-ROCHE-3458396

PATIENT
  Age: 69 Year
  Sex: Female

DRUGS (2)
  1. ATEZOLIZUMAB [Suspect]
     Active Substance: ATEZOLIZUMAB
     Indication: Hepatocellular carcinoma
     Route: 042
  2. CARAFATE [Concomitant]
     Active Substance: SUCRALFATE

REACTIONS (2)
  - Upper gastrointestinal haemorrhage [Unknown]
  - Gastrointestinal ulcer [Unknown]
